FAERS Safety Report 7772898-0 (Version None)
Quarter: 2011Q3

REPORT INFORMATION
  Report Type: 
  Country: None (occurrence: None)
  Receive Date: 20110922
  Receipt Date: 20110915
  Transmission Date: 20111222
  Serious: Yes (Other)
  Sender: FDA-Public Use
  Company Number: US-B.I. PHARMACEUTICALS,INC./RIDGEFIELD-2011-BP-22255BP

PATIENT
  Sex: Female

DRUGS (2)
  1. TOPAMAX [Concomitant]
     Indication: CONVULSION
  2. MICARDIS HCT [Suspect]
     Indication: HYPERTENSION
     Route: 048
     Dates: start: 20060101

REACTIONS (4)
  - CONVULSION [None]
  - INCREASED UPPER AIRWAY SECRETION [None]
  - ALLERGY TO CHEMICALS [None]
  - GASTROOESOPHAGEAL REFLUX DISEASE [None]
